FAERS Safety Report 4783988-9 (Version None)
Quarter: 2005Q3

REPORT INFORMATION
  Report Type: 
  Country: None (occurrence: None)
  Receive Date: 20050927
  Receipt Date: 20050804
  Transmission Date: 20060218
  Serious: No
  Sender: FDA-Public Use
  Company Number: USA0508104934

PATIENT
  Age: 12 Year
  Sex: Male

DRUGS (1)
  1. STRATTERA [Suspect]
     Dosage: 60 MG
     Dates: start: 20050101, end: 20050803

REACTIONS (3)
  - COLD SWEAT [None]
  - HYPERHIDROSIS [None]
  - PENILE DISCHARGE [None]
